FAERS Safety Report 6716513-3 (Version None)
Quarter: 2010Q2

REPORT INFORMATION
  Report Type: 
  Country: None (occurrence: None)
  Receive Date: 20100507
  Receipt Date: 20100427
  Transmission Date: 20101027
  Serious: Yes (Hospitalization, Other)
  Sender: FDA-Public Use
  Company Number: US-CEPHALON-2010002449

PATIENT
  Sex: Male

DRUGS (7)
  1. ACTIQ [Suspect]
     Indication: PAIN
     Route: 002
     Dates: start: 20050101, end: 20050101
  2. ACTIQ [Suspect]
     Route: 002
     Dates: start: 20050101, end: 20060101
  3. ACTIQ [Suspect]
     Route: 002
     Dates: start: 20060101, end: 20100201
  4. PROSOM [Concomitant]
     Indication: INSOMNIA
     Dates: start: 20000101
  5. ALPRAZOLAM [Concomitant]
     Indication: MUSCLE RELAXANT THERAPY
  6. OXYCONTIN [Concomitant]
     Indication: PAIN
  7. BUTALBITAL/ACETAMINOPHEN [Concomitant]
     Indication: HEADACHE
     Dates: start: 20000101

REACTIONS (8)
  - DRUG PRESCRIBING ERROR [None]
  - FUNGAL INFECTION [None]
  - GINGIVAL BLEEDING [None]
  - GINGIVAL RECESSION [None]
  - PLEURISY [None]
  - RHEUMATOID ARTHRITIS [None]
  - SYSTEMIC LUPUS ERYTHEMATOSUS [None]
  - TOOTH LOSS [None]
